FAERS Safety Report 6383165-4 (Version None)
Quarter: 2009Q3

REPORT INFORMATION
  Report Type: 
  Country: None (occurrence: None)
  Receive Date: 20090929
  Receipt Date: 20090914
  Transmission Date: 20100115
  Serious: Yes (Death, Hospitalization)
  Sender: FDA-Public Use
  Company Number: 2009AL002411

PATIENT
  Age: 76 Year
  Sex: Female
  Weight: 83.4619 kg

DRUGS (26)
  1. DIGOXIN [Suspect]
     Dosage: 0.125MG, UNK, PO
     Route: 048
     Dates: start: 20040501
  2. PLAVIX [Concomitant]
  3. PREDNISONE [Concomitant]
  4. VYTORIN [Concomitant]
  5. MICRO-K [Concomitant]
  6. CORDARONE [Concomitant]
  7. ASPIRIN [Concomitant]
  8. AMIODARONE [Concomitant]
  9. TRAMADOL HCL [Concomitant]
  10. POTASSIUM CHLORIDE [Concomitant]
  11. NYSTATIN [Concomitant]
  12. BENEFIBERM [Concomitant]
  13. PACERONE [Concomitant]
  14. ZOCOR [Concomitant]
  15. FLEXERIL [Concomitant]
  16. LIDODERM [Concomitant]
  17. ERGOCALCIFEROL [Concomitant]
  18. DURAGESIC-100 [Concomitant]
  19. DARVOCET [Concomitant]
  20. MINITRAN [Concomitant]
  21. GLCOLAX [Concomitant]
  22. LISINOPRIL [Concomitant]
  23. FUROSEMIDE [Concomitant]
  24. AMIODARONE HCL [Concomitant]
  25. PROPRANOLOL [Concomitant]
  26. NITROGLYCERIN [Concomitant]

REACTIONS (45)
  - ABASIA [None]
  - ABDOMINAL PAIN [None]
  - ALOPECIA [None]
  - ANAEMIA [None]
  - ASTHENIA [None]
  - BALANCE DISORDER [None]
  - BREAST CANCER FEMALE [None]
  - CARDIAC ARREST [None]
  - CARDIAC DISORDER [None]
  - CARDIAC FAILURE CONGESTIVE [None]
  - CARDIAC MURMUR [None]
  - CAROTID ARTERY ANEURYSM [None]
  - CELLULITIS [None]
  - CONFUSIONAL STATE [None]
  - CONSTIPATION [None]
  - DIALYSIS [None]
  - DIARRHOEA [None]
  - DIZZINESS [None]
  - DYSPHONIA [None]
  - ECONOMIC PROBLEM [None]
  - FALL [None]
  - HAEMORRHAGE [None]
  - HEPATIC NEOPLASM [None]
  - HYPERKALAEMIA [None]
  - HYPOTENSION [None]
  - INCREASED TENDENCY TO BRUISE [None]
  - INJURY [None]
  - INSOMNIA [None]
  - JOINT SWELLING [None]
  - LOSS OF CONSCIOUSNESS [None]
  - NECK PAIN [None]
  - OEDEMA [None]
  - PERIPHERAL VASCULAR DISORDER [None]
  - PLEURAL EFFUSION [None]
  - POLLAKIURIA [None]
  - PYREXIA [None]
  - RENAL DISORDER [None]
  - RENAL FAILURE ACUTE [None]
  - RESTLESSNESS [None]
  - RETROPERITONEAL NEOPLASM [None]
  - SINUS HEADACHE [None]
  - SKIN LESION [None]
  - SYNCOPE [None]
  - THERAPEUTIC AGENT TOXICITY [None]
  - URINARY INCONTINENCE [None]
